FAERS Safety Report 16067771 (Version 1)
Quarter: 2019Q1

REPORT INFORMATION
  Report Type: Spontaneous
  Country: US (occurrence: US)
  Receive Date: 20190313
  Receipt Date: 20190313
  Transmission Date: 20190418
  Serious: No
  Sender: FDA-Public Use
  Company Number: US-PFIZER INC-2019100799

PATIENT
  Sex: Male

DRUGS (3)
  1. LYRICA [Suspect]
     Active Substance: PREGABALIN
     Dosage: UNK
     Dates: start: 2019
  2. HYDROCODONE [HYDROCODONE BITARTRATE] [Concomitant]
     Indication: SPINAL OPERATION
     Dosage: UNK
  3. DURAGESIC [Concomitant]
     Active Substance: FENTANYL
     Indication: SPINAL OPERATION
     Dosage: UNK

REACTIONS (2)
  - Feeling abnormal [Unknown]
  - Dizziness [Unknown]
